FAERS Safety Report 9912465 (Version 2)
Quarter: 2014Q1

REPORT INFORMATION
  Report Type: Report from Study
  Country: MX (occurrence: MX)
  Receive Date: 20140220
  Receipt Date: 20140325
  Transmission Date: 20141002
  Serious: Yes (Other)
  Sender: FDA-Public Use
  Company Number: MX-ORION CORPORATION ORION PHARMA-ENTC2014-0068

PATIENT
  Age: 80 Year
  Sex: Male

DRUGS (5)
  1. STALEVO [Suspect]
     Indication: PARKINSON^S DISEASE
     Route: 065
  2. EXELON [Suspect]
     Indication: DEMENTIA ALZHEIMER^S TYPE
     Dosage: 1 PATCH (5 CM2)
     Route: 062
     Dates: start: 200910
  3. LEXAPRO [Suspect]
     Route: 065
     Dates: start: 2005
  4. NORVAS [Concomitant]
     Route: 065
     Dates: start: 200908
  5. SPIRIVA [Concomitant]
     Route: 065

REACTIONS (5)
  - Fall [Recovered/Resolved]
  - Groin pain [Recovered/Resolved]
  - Traumatic haemorrhage [Recovered/Resolved]
  - Embolism [Recovered/Resolved]
  - Dyspnoea [Not Recovered/Not Resolved]
